FAERS Safety Report 24526451 (Version 1)
Quarter: 2024Q4

REPORT INFORMATION
  Report Type: Spontaneous
  Country: IN (occurrence: IN)
  Receive Date: 20241021
  Receipt Date: 20241021
  Transmission Date: 20250114
  Serious: Yes (Death, Life-Threatening, Hospitalization, Other)
  Sender: AMGEN
  Company Number: IN-AMGEN-INDSP2024205178

PATIENT
  Age: 60 Year
  Sex: Female

DRUGS (3)
  1. APREMILAST [Suspect]
     Active Substance: APREMILAST
     Indication: Type 2 lepra reaction
     Dosage: 30 MILLIGRAM, BID
     Route: 065
  2. APREMILAST [Suspect]
     Active Substance: APREMILAST
     Indication: Off label use
  3. CLOFAZIMINE [Concomitant]
     Active Substance: CLOFAZIMINE

REACTIONS (6)
  - Cerebrovascular accident [Fatal]
  - Arteritis infective [Fatal]
  - Type 2 lepra reaction [Unknown]
  - Drug effective for unapproved indication [Unknown]
  - Loss of therapeutic response [Unknown]
  - Off label use [Unknown]
